FAERS Safety Report 21249031 (Version 2)
Quarter: 2022Q4

REPORT INFORMATION
  Report Type: Spontaneous
  Country: US (occurrence: US)
  Receive Date: 20220824
  Receipt Date: 20221027
  Transmission Date: 20230112
  Serious: Yes (Other)
  Sender: FDA-Public Use
  Company Number: US-SA-SAC20220823000222

PATIENT
  Age: 43 Year
  Sex: Female

DRUGS (1)
  1. DUPIXENT [Suspect]
     Active Substance: DUPILUMAB
     Indication: Dermatitis atopic
     Dosage: 300 MG, QOW
     Route: 058
     Dates: start: 202202, end: 2022

REACTIONS (5)
  - Macular oedema [Unknown]
  - Angioedema [Unknown]
  - Weight increased [Unknown]
  - Inflammation [Unknown]
  - General physical condition abnormal [Unknown]
